FAERS Safety Report 10142373 (Version 2)
Quarter: 2014Q2

REPORT INFORMATION
  Report Type: Spontaneous
  Country: ZA (occurrence: ZA)
  Receive Date: 20140430
  Receipt Date: 20140505
  Transmission Date: 20141212
  Serious: Yes (Death, Hospitalization, Other)
  Sender: FDA-Public Use
  Company Number: ZA-MERCK-1404ZAF013702

PATIENT
  Sex: Male

DRUGS (2)
  1. CANCIDAS 50MG [Suspect]
     Indication: ABDOMINAL SEPSIS
     Dosage: 70 MG, QD
     Route: 041
     Dates: start: 20140321
  2. CANCIDAS 50MG [Suspect]
     Indication: FUNGAL INFECTION
     Dosage: 50 MG, QD
     Route: 041
     Dates: end: 20140411

REACTIONS (6)
  - Drug ineffective [Fatal]
  - Multi-organ failure [Unknown]
  - Bacteroides infection [Unknown]
  - Candida infection [Unknown]
  - Stenotrophomonas infection [Unknown]
  - Staphylococcal infection [Unknown]
